FAERS Safety Report 8110932-9 (Version None)
Quarter: 2012Q1

REPORT INFORMATION
  Report Type: 
  Country: None (occurrence: None)
  Receive Date: 20120203
  Receipt Date: 20100518
  Transmission Date: 20120608
  Serious: Yes (Other)
  Sender: FDA-Public Use
  Company Number: US-GLAXOSMITHKLINE-A0860228A

PATIENT
  Age: 25 Year
  Sex: Female
  Weight: 62.6 kg

DRUGS (8)
  1. SUPPLEMENT [Concomitant]
     Indication: PROPHYLAXIS
     Dosage: 2TAB PER DAY
     Route: 048
     Dates: start: 20020101
  2. CALCIUM [Concomitant]
     Indication: PROPHYLAXIS
     Dosage: 4TAB PER DAY
     Route: 048
     Dates: start: 20020101
  3. ANTIOXIDANTS [Concomitant]
     Indication: PROPHYLAXIS
     Dosage: 1TAB PER DAY
     Route: 048
     Dates: start: 20020101
  4. LAMOTRIGINE [Suspect]
     Indication: EPILEPSY
     Dosage: 250MG PER DAY
     Route: 048
     Dates: start: 20060301
  5. BIOMEGA [Concomitant]
     Indication: PROPHYLAXIS
     Dosage: 2TAB PER DAY
     Route: 048
     Dates: start: 20020101
  6. EFFEXOR XR [Concomitant]
     Indication: DEPRESSION
     Dosage: 225MG PER DAY
     Route: 048
     Dates: start: 20040801
  7. FOLIC ACID [Concomitant]
     Indication: PROPHYLAXIS
     Dosage: 1MG PER DAY
     Route: 048
     Dates: start: 20100801
  8. CHELATED MINERAL [Concomitant]
     Indication: PROPHYLAXIS
     Dosage: 2TAB PER DAY
     Route: 048
     Dates: start: 20020101

REACTIONS (3)
  - MATERNAL EXPOSURE DURING PREGNANCY [None]
  - ANTICONVULSANT DRUG LEVEL DECREASED [None]
  - CONVULSION [None]
